FAERS Safety Report 4509318-5 (Version None)
Quarter: 2004Q4

REPORT INFORMATION
  Report Type: 
  Country: None (occurrence: None)
  Receive Date: 20041025
  Receipt Date: 20040709
  Transmission Date: 20050328
  Serious: Yes (Hospitalization)
  Sender: FDA-Public Use
  Company Number: US-JNJFOC-20040703058

PATIENT
  Age: 56 Year
  Sex: Female

DRUGS (7)
  1. INFLIXIMAB (INFLIXIMAB, RECOMBINANT) LYOPHILIZED POWDER [Suspect]
     Indication: RHEUMATOID ARTHRITIS
     Dosage: INTRAVENOUS
     Route: 042
     Dates: start: 20030317, end: 20040503
  2. METHOTREXATE [Concomitant]
  3. FOLIC ACID [Concomitant]
  4. OSCAL+D (CALCIUM D3 ^STADA^) [Concomitant]
  5. PHENOBARBITAL TAB [Concomitant]
  6. SYNTHROID [Concomitant]
  7. VIOXX [Concomitant]

REACTIONS (1)
  - LYMPHADENOPATHY [None]
